FAERS Safety Report 6231998-7 (Version None)
Quarter: 2009Q2

REPORT INFORMATION
  Report Type: 
  Country: None (occurrence: None)
  Receive Date: 20090612
  Receipt Date: 20090604
  Transmission Date: 20091009
  Serious: Yes (Hospitalization, Other)
  Sender: FDA-Public Use
  Company Number: FR-WYE-G03791409

PATIENT
  Age: 45 Year
  Sex: Female

DRUGS (10)
  1. EFFEXOR XR [Suspect]
     Indication: MAJOR DEPRESSION
     Dosage: SEE IMAGE, ORAL
     Route: 048
     Dates: start: 20081209, end: 20081212
  2. EFFEXOR XR [Suspect]
     Indication: MAJOR DEPRESSION
     Dosage: SEE IMAGE, ORAL
     Route: 048
     Dates: start: 20081213, end: 20081221
  3. EFFEXOR XR [Suspect]
     Indication: MAJOR DEPRESSION
     Dosage: SEE IMAGE, ORAL
     Route: 048
     Dates: start: 20081222, end: 20090111
  4. EFFEXOR XR [Suspect]
     Indication: MAJOR DEPRESSION
     Dosage: SEE IMAGE, ORAL
     Route: 048
     Dates: start: 20090112, end: 20090118
  5. EFFEXOR XR [Suspect]
     Indication: MAJOR DEPRESSION
     Dosage: SEE IMAGE, ORAL
     Route: 048
     Dates: start: 20090119, end: 20090126
  6. OXAZEPAM [Suspect]
     Indication: MAJOR DEPRESSION
     Dosage: 40 MG TOTAL DAILY, 30 MG TOTAL DAILY
     Route: 048
     Dates: start: 20081205
  7. TERCIAN CYAMEMAZINE, 0) [Suspect]
     Indication: MAJOR DEPRESSION
     Dosage: 25 DROP 4X PER 1 DAY, ORAL, 25 DROP 3X PER 1 DAY, ORAL
     Route: 048
     Dates: start: 20081209, end: 20090111
  8. TERCIAN CYAMEMAZINE, 0) [Suspect]
     Indication: MAJOR DEPRESSION
     Dosage: 25 DROP 4X PER 1 DAY, ORAL, 25 DROP 3X PER 1 DAY, ORAL
     Route: 048
     Dates: start: 20090112, end: 20090126
  9. IRBESARTAN [Concomitant]
  10. IMOVANE (ZOPICLONE) [Concomitant]

REACTIONS (6)
  - AGRANULOCYTOSIS [None]
  - GRANULOCYTES MATURATION ARREST [None]
  - HAEMOGLOBIN DECREASED [None]
  - MARROW HYPERPLASIA [None]
  - PLATELET COUNT DECREASED [None]
  - PYREXIA [None]
